FAERS Safety Report 14544360 (Version 1)
Quarter: 2018Q1

REPORT INFORMATION
  Report Type: Spontaneous
  Country: US (occurrence: US)
  Receive Date: 20180215
  Receipt Date: 20180215
  Transmission Date: 20180509
  Serious: No
  Sender: FDA-Public Use
  Company Number: None

PATIENT
  Age: 64 Year
  Sex: Male
  Weight: 115.5 kg

DRUGS (1)
  1. LIDOCAINE. [Suspect]
     Active Substance: LIDOCAINE
     Indication: FISTULA REPAIR
     Dates: start: 20180104, end: 20180104

REACTIONS (7)
  - Skin exfoliation [None]
  - Documented hypersensitivity to administered product [None]
  - Penile pain [None]
  - Penile ulceration [None]
  - Stevens-Johnson syndrome [None]
  - Testicular pain [None]
  - Rash [None]

NARRATIVE: CASE EVENT DATE: 20180104
